FAERS Safety Report 24566443 (Version 1)
Quarter: 2024Q4

REPORT INFORMATION
  Report Type: Spontaneous
  Country: US (occurrence: None)
  Receive Date: 20241029
  Receipt Date: 20241029
  Transmission Date: 20250114
  Serious: No
  Sender: Public
  Company Number: None

PATIENT
  Age: 82 Year
  Sex: Male
  Weight: 93 kg

DRUGS (2)
  1. SITAGLIPTIN [Suspect]
     Active Substance: SITAGLIPTIN
     Indication: Diabetes mellitus
     Dosage: FREQUENCY : DAILY;?
     Route: 048
     Dates: start: 20240704, end: 20240718
  2. ALOGLIPTIN [Suspect]
     Active Substance: ALOGLIPTIN

REACTIONS (14)
  - Blister [None]
  - Furuncle [None]
  - Diarrhoea [None]
  - Pruritus [None]
  - Tenderness [None]
  - Burning sensation [None]
  - Pruritus [None]
  - Erythema [None]
  - Skin exfoliation [None]
  - Therapy cessation [None]
  - Secretion discharge [None]
  - Scab [None]
  - Herpes zoster [None]
  - Pemphigoid [None]

NARRATIVE: CASE EVENT DATE: 20240704
